FAERS Safety Report 12631563 (Version 2)
Quarter: 2016Q3

REPORT INFORMATION
  Report Type: Spontaneous
  Country: US (occurrence: US)
  Receive Date: 20160808
  Receipt Date: 20160808
  Transmission Date: 20161109
  Serious: No
  Sender: FDA-Public Use
  Company Number: US-BEH-2015054673

PATIENT
  Sex: Female
  Weight: 98 kg

DRUGS (16)
  1. HIZENTRA [Suspect]
     Active Substance: HUMAN IMMUNOGLOBULIN G
     Indication: CONGENITAL HYPOGAMMAGLOBULINAEMIA
     Route: 058
  2. COZAAR [Concomitant]
     Active Substance: LOSARTAN POTASSIUM
  3. VENTOLIN [Concomitant]
     Active Substance: ALBUTEROL SULFATE
  4. LANTUS [Concomitant]
     Active Substance: INSULIN GLARGINE
  5. HYZAAR [Concomitant]
     Active Substance: HYDROCHLOROTHIAZIDE\LOSARTAN POTASSIUM
  6. ACULAR [Concomitant]
     Active Substance: KETOROLAC TROMETHAMINE
  7. ACETAMINOPHEN. [Concomitant]
     Active Substance: ACETAMINOPHEN
  8. CORTISONE [Concomitant]
     Active Substance: CORTISONE\HYDROCORTISONE
  9. EPIPEN [Concomitant]
     Active Substance: EPINEPHRINE
     Indication: ANAPHYLACTIC REACTION
  10. MACRODANTIN [Concomitant]
     Active Substance: NITROFURANTOIN
  11. VITAMIN B [Concomitant]
     Active Substance: VITAMIN B
  12. VITAMIN D [Concomitant]
     Active Substance: CHOLECALCIFEROL
  13. DENVAR [Concomitant]
     Active Substance: CEFIXIME
  14. CLEOCIN [Concomitant]
     Active Substance: CLINDAMYCIN PHOSPHATE
  15. XALATAN [Concomitant]
     Active Substance: LATANOPROST
  16. NITROGLYCERIN. [Concomitant]
     Active Substance: NITROGLYCERIN

REACTIONS (4)
  - Administration site pruritus [Unknown]
  - Administration site swelling [Unknown]
  - Administration site reaction [Unknown]
  - Administration site discolouration [Unknown]
